APPROVED DRUG PRODUCT: MIRVASO
Active Ingredient: BRIMONIDINE TARTRATE
Strength: EQ 0.33% BASE
Dosage Form/Route: GEL;TOPICAL
Application: N204708 | Product #001 | TE Code: AB
Applicant: GALDERMA LABORATORIES LP
Approved: Aug 23, 2013 | RLD: Yes | RS: Yes | Type: RX

PATENTS:
Patent 9861631 | Expires: Mar 25, 2031
Patent 9861632 | Expires: Mar 25, 2031
Patent 8163725 | Expires: Jun 13, 2031
Patent 10201517 | Expires: Jun 13, 2031
Patent 8053427 | Expires: Jun 13, 2031
Patent 8513247 | Expires: Mar 25, 2031
Patent 8513249 | Expires: Mar 25, 2031